FAERS Safety Report 6196851-6 (Version None)
Quarter: 2009Q2

REPORT INFORMATION
  Report Type: 
  Country: None (occurrence: None)
  Receive Date: 20090520
  Receipt Date: 20090512
  Transmission Date: 20091009
  Serious: Yes (Hospitalization)
  Sender: FDA-Public Use
  Company Number: US-GILEAD-2009-0021395

PATIENT
  Sex: Female
  Weight: 59.928 kg

DRUGS (12)
  1. LETAIRIS [Suspect]
     Indication: PULMONARY ARTERIAL HYPERTENSION
     Route: 048
     Dates: start: 20090213, end: 20090301
  2. REVATIO [Concomitant]
  3. SIMVASTATIN [Concomitant]
  4. TRIAMTERENE AND HYDROCHLOROTHIAZIDE [Concomitant]
  5. ASPIRIN [Concomitant]
  6. OXYGEN [Concomitant]
  7. SYNTHROID [Concomitant]
  8. ACIPHEX [Concomitant]
  9. CALTRATE 600 D [Concomitant]
  10. FISH OIL [Concomitant]
  11. CENTRUM SILVER [Concomitant]
  12. CINNAMON [Concomitant]

REACTIONS (2)
  - ANAEMIA [None]
  - BLOOD IRON DECREASED [None]
